FAERS Safety Report 10185974 (Version 1)
Quarter: 2014Q2

REPORT INFORMATION
  Report Type: Spontaneous
  Country: US (occurrence: US)
  Receive Date: 20140521
  Receipt Date: 20140521
  Transmission Date: 20141212
  Serious: Yes (Hospitalization)
  Sender: FDA-Public Use
  Company Number: 2014SP002690

PATIENT
  Age: 16 Year
  Sex: Female
  Weight: 72.3 kg

DRUGS (11)
  1. METHOTREXATE [Suspect]
     Route: 042
     Dates: start: 20140111
  2. METHOTREXATE [Suspect]
     Route: 037
     Dates: start: 20140106, end: 20140106
  3. DEXAMETHASONE [Suspect]
     Route: 048
     Dates: start: 20140106, end: 20140110
  4. DEXAMETHASONE [Suspect]
     Route: 048
     Dates: start: 20140111
  5. CYTARABINE [Suspect]
     Route: 037
     Dates: start: 20140106, end: 20140106
  6. IFOSFAMIDE [Suspect]
     Route: 042
     Dates: start: 20140111
  7. HYDROCORTISONE [Suspect]
     Route: 037
     Dates: start: 20140106, end: 20140106
  8. CRIZOTINIB [Suspect]
     Route: 048
     Dates: start: 20140111
  9. CRIZOTINIB [Suspect]
  10. CYCLOPHOSPHAMIDE [Concomitant]
     Dates: start: 20140106, end: 20140107
  11. ONDANSETRON HCL [Concomitant]
     Indication: NAUSEA

REACTIONS (17)
  - Posterior reversible encephalopathy syndrome [Recovering/Resolving]
  - Vasogenic cerebral oedema [Unknown]
  - Generalised tonic-clonic seizure [Recovered/Resolved]
  - Loss of consciousness [Recovered/Resolved]
  - Enuresis [Recovered/Resolved]
  - Headache [Recovered/Resolved]
  - Cyanosis [Recovered/Resolved]
  - Confusional state [Recovered/Resolved]
  - Asthenia [Recovered/Resolved]
  - Eye movement disorder [Recovered/Resolved]
  - Musculoskeletal stiffness [Recovered/Resolved]
  - Ileus [Recovered/Resolved]
  - Abdominal distension [Recovering/Resolving]
  - Vomiting [Recovering/Resolving]
  - Colitis [Recovering/Resolving]
  - Abdominal pain [Recovering/Resolving]
  - Nausea [Recovering/Resolving]
